FAERS Safety Report 6958594-8 (Version None)
Quarter: 2010Q3

REPORT INFORMATION
  Report Type: 
  Country: None (occurrence: None)
  Receive Date: 20100831
  Receipt Date: 20100823
  Transmission Date: 20110219
  Serious: No
  Sender: FDA-Public Use
  Company Number: US-US-EMD SERONO, INC.-7010597

PATIENT
  Sex: Female

DRUGS (2)
  1. REBIF [Suspect]
     Indication: PRODUCT USED FOR UNKNOWN INDICATION
     Dates: start: 20070525
  2. AMPYRA [Suspect]
     Dates: start: 20100615, end: 20100101

REACTIONS (6)
  - BALANCE DISORDER [None]
  - COORDINATION ABNORMAL [None]
  - DYSPNOEA [None]
  - GAIT DISTURBANCE [None]
  - PRODUCTIVE COUGH [None]
  - VISION BLURRED [None]
